FAERS Safety Report 7776272-2 (Version None)
Quarter: 2011Q3

REPORT INFORMATION
  Report Type: 
  Country: None (occurrence: None)
  Receive Date: 20110926
  Receipt Date: 20110913
  Transmission Date: 20111222
  Serious: No
  Sender: FDA-Public Use
  Company Number: US-JNJFOC-20110907076

PATIENT
  Sex: Female
  Weight: 77.11 kg

DRUGS (4)
  1. FENTANYL-100 [Suspect]
     Route: 062
  2. FENTANYL-100 [Suspect]
     Indication: BACK PAIN
     Route: 062
     Dates: end: 20110908
  3. FENTANYL-100 [Suspect]
     Indication: BACK PAIN
     Route: 062
  4. FENTANYL-100 [Suspect]
     Route: 062
     Dates: start: 20110908

REACTIONS (10)
  - WRONG TECHNIQUE IN DRUG USAGE PROCESS [None]
  - PRODUCT ADHESION ISSUE [None]
  - DRUG ADMINISTERED AT INAPPROPRIATE SITE [None]
  - APPLICATION SITE RASH [None]
  - HEADACHE [None]
  - MORBID THOUGHTS [None]
  - HYPERHIDROSIS [None]
  - DECREASED APPETITE [None]
  - FEELING ABNORMAL [None]
  - DRUG INEFFECTIVE [None]
